FAERS Safety Report 9351483 (Version 1)
Quarter: 2013Q2

REPORT INFORMATION
  Report Type: Spontaneous
  Country: US (occurrence: US)
  Receive Date: 20130617
  Receipt Date: 20130617
  Transmission Date: 20140414
  Serious: Yes (Hospitalization)
  Sender: FDA-Public Use
  Company Number: US-PFIZER INC-2013176735

PATIENT
  Age: 62 Year
  Sex: Male

DRUGS (1)
  1. GEMCITABINE HYDROCHLORIDE [Suspect]
     Indication: PANCREATIC CARCINOMA
     Dosage: 6 CYCLES

REACTIONS (4)
  - Pulmonary toxicity [Recovered/Resolved]
  - Pericardial effusion [Recovered/Resolved]
  - Eosinophilia [Recovered/Resolved]
  - Oedema peripheral [None]
